FAERS Safety Report 6026338-2 (Version None)
Quarter: 2008Q4

REPORT INFORMATION
  Report Type: 
  Country: None (occurrence: None)
  Receive Date: 20081222
  Receipt Date: 20081010
  Transmission Date: 20090506
  Serious: No
  Sender: FDA-Public Use
  Company Number: US-WYE-H06372908

PATIENT
  Age: 48 Year
  Sex: Female
  Weight: 74.91 kg

DRUGS (6)
  1. PRISTIQ [Suspect]
     Indication: DEPRESSION
     Dosage: 50 MG 1X PER 1 DAY, ORAL
     Route: 048
     Dates: start: 20081006
  2. GEODON [Concomitant]
  3. XANAX [Concomitant]
  4. DEXTROAMPHETAMINE SULFATE [Concomitant]
  5. LEVOTHYROXINE SODIUM [Concomitant]
  6. CRESTOR [Concomitant]

REACTIONS (5)
  - ABNORMAL DREAMS [None]
  - FEELING ABNORMAL [None]
  - POOR QUALITY SLEEP [None]
  - SLEEP DISORDER [None]
  - THINKING ABNORMAL [None]
